FAERS Safety Report 20435766 (Version 1)
Quarter: 2022Q1

REPORT INFORMATION
  Report Type: Spontaneous
  Country: FR (occurrence: FR)
  Receive Date: 20220207
  Receipt Date: 20220207
  Transmission Date: 20220423
  Serious: Yes (Other)
  Sender: FDA-Public Use
  Company Number: FR-TEVA-2022-FR-1999309

PATIENT
  Sex: Male

DRUGS (2)
  1. AMIODARONE [Suspect]
     Active Substance: AMIODARONE
     Indication: Product used for unknown indication
     Dosage: UNK
     Route: 065
  2. ALECTINIB [Suspect]
     Active Substance: ALECTINIB
     Indication: Non-small cell lung cancer stage IV
     Dosage: 8 DOSAGE FORM, ONCE A DAY(8 DOSAGE FORMS DAILY; INITIALLY, ADMINISTERED VIA NASOGASTRIC FEEDING TUBE
     Route: 065

REACTIONS (3)
  - Hypothyroidism [Unknown]
  - Hepatic cytolysis [Recovering/Resolving]
  - Intentional product misuse [Unknown]
